FAERS Safety Report 10391817 (Version 4)
Quarter: 2014Q4

REPORT INFORMATION
  Report Type: Report from Study
  Country: MX (occurrence: MX)
  Receive Date: 20140819
  Receipt Date: 20141224
  Transmission Date: 20150528
  Serious: Yes (Hospitalization, Disabling)
  Sender: FDA-Public Use
  Company Number: MX-ROCHE-1399698

PATIENT
  Age: 51 Year
  Sex: Female
  Weight: 85 kg

DRUGS (6)
  1. DICLOFENAC [Suspect]
     Active Substance: DICLOFENAC
     Route: 048
     Dates: start: 201406
  2. FOLIC ACID. [Concomitant]
     Active Substance: FOLIC ACID
  3. DICLOFENAC [Suspect]
     Active Substance: DICLOFENAC
     Indication: RHEUMATOID ARTHRITIS
     Dosage: 1 IN THE MORNING, 1 AT NIGHT
     Route: 048
     Dates: start: 201406, end: 201406
  4. ROACTEMRA [Suspect]
     Active Substance: TOCILIZUMAB
     Indication: RHEUMATOID ARTHRITIS
     Route: 042
     Dates: start: 201401
  5. METHOTREXATE [Suspect]
     Active Substance: METHOTREXATE
     Indication: RHEUMATOID ARTHRITIS
     Dosage: 2.5 TABLETS ON SATURDAY, 2.5 TABLETS ON SUNDAY
     Route: 048
     Dates: end: 201406
  6. PLAQUENIL [Concomitant]
     Active Substance: HYDROXYCHLOROQUINE SULFATE
     Indication: RHEUMATOID ARTHRITIS

REACTIONS (10)
  - Infection [Unknown]
  - Drug abuse [Unknown]
  - Upper respiratory tract infection [Recovered/Resolved]
  - Drug ineffective [Unknown]
  - Transaminases increased [Recovering/Resolving]
  - Arthritis [Unknown]
  - Pain [Recovering/Resolving]
  - Malaise [Recovering/Resolving]
  - Asthenia [Recovering/Resolving]
  - Weight increased [Not Recovered/Not Resolved]

NARRATIVE: CASE EVENT DATE: 201402
